FAERS Safety Report 7054771-9 (Version None)
Quarter: 2010Q4

REPORT INFORMATION
  Report Type: 
  Country: None (occurrence: None)
  Receive Date: 20101018
  Receipt Date: 20101004
  Transmission Date: 20110411
  Serious: Yes (Life-Threatening, Disabling, Other)
  Sender: FDA-Public Use
  Company Number: 1000016611

PATIENT
  Age: 69 Year
  Sex: Female

DRUGS (6)
  1. LEXAPRO [Suspect]
     Indication: DEPRESSION
     Dosage: 20 MG (20 MG, 1 IN 1 D), ORAL
     Route: 048
  2. IMIGTREX (SUMATRIPTAN SUCCINATE) (TABLETS) [Suspect]
     Indication: HEADACHE
     Dosage: (AS REQUIRED) 25 MG (25 MG, 1 IN 1 D), ORAL
     Route: 048
     Dates: start: 20100713, end: 20100823
  3. REMERON [Suspect]
     Indication: SOMNOLENCE
     Dosage: 7.5 MG (7.5 MG, 1 IN 1 D), ORAL
     Route: 048
  4. TRAZODONE HCL [Suspect]
     Indication: SOMNOLENCE
     Dosage: 50 MG (50 MG, 1 IN 1 D), ORAL
     Route: 048
     Dates: start: 20100713, end: 20100823
  5. RISPERDAL [Suspect]
  6. KEPPRA [Concomitant]

REACTIONS (6)
  - ACTIVITIES OF DAILY LIVING IMPAIRED [None]
  - COORDINATION ABNORMAL [None]
  - INAPPROPRIATE SCHEDULE OF DRUG ADMINISTRATION [None]
  - INCOHERENT [None]
  - POTENTIATING DRUG INTERACTION [None]
  - SERUM SEROTONIN INCREASED [None]
